FAERS Safety Report 8889054 (Version 1)
Quarter: 2012Q4

REPORT INFORMATION
  Report Type: 
  Country: US (occurrence: US)
  Receive Date: 20121106
  Receipt Date: 20121106
  Transmission Date: 20130627
  Serious: Yes (Hospitalization)
  Sender: FDA-Public Use
  Company Number: US-FRI-1000040002

PATIENT
  Age: 30 Year
  Sex: Female

DRUGS (2)
  1. VIIBRYD [Suspect]
  2. ADDERALL [Concomitant]

REACTIONS (2)
  - Muscle spasticity [Recovered/Resolved]
  - Dyskinesia [Recovered/Resolved]
